FAERS Safety Report 20451681 (Version 1)
Quarter: 2022Q1

REPORT INFORMATION
  Report Type: Spontaneous
  Country: FR (occurrence: FR)
  Receive Date: 20220209
  Receipt Date: 20220209
  Transmission Date: 20220423
  Serious: Yes (Hospitalization)
  Sender: FDA-Public Use
  Company Number: None

PATIENT
  Age: 69 Year
  Sex: Male
  Weight: 69.5 kg

DRUGS (1)
  1. IMBRUVICA [Suspect]
     Active Substance: IBRUTINIB
     Indication: Chronic lymphocytic leukaemia
     Route: 048
     Dates: start: 202111, end: 202201

REACTIONS (2)
  - Necrotising retinitis [Not Recovered/Not Resolved]
  - Disseminated aspergillosis [Not Recovered/Not Resolved]

NARRATIVE: CASE EVENT DATE: 20220110
